FAERS Safety Report 10304227 (Version 2)
Quarter: 2014Q3

REPORT INFORMATION
  Report Type: Spontaneous
  Country: US (occurrence: US)
  Receive Date: 20140714
  Receipt Date: 20140714
  Transmission Date: 20150326
  Serious: Yes (Death, Hospitalization)
  Sender: FDA-Public Use
  Company Number: US-CELGENEUS-163-POMAL-14061514

PATIENT
  Sex: Male

DRUGS (1)
  1. POMALYST [Suspect]
     Active Substance: POMALIDOMIDE
     Indication: LYMPHOMA
     Dosage: 4 MILLIGRAM
     Route: 048
     Dates: start: 20140604, end: 20140625

REACTIONS (2)
  - Lymphoma [Fatal]
  - Renal function test abnormal [Unknown]

NARRATIVE: CASE EVENT DATE: 2014
